FAERS Safety Report 6862248-6 (Version None)
Quarter: 2010Q3

REPORT INFORMATION
  Report Type: 
  Country: None (occurrence: None)
  Receive Date: 20100721
  Receipt Date: 20100708
  Transmission Date: 20110219
  Serious: Yes (Other)
  Sender: FDA-Public Use
  Company Number: IT-CELGENEUS-083-21880-07090546

PATIENT

DRUGS (9)
  1. REVLIMID [Suspect]
     Indication: MULTIPLE MYELOMA
     Dosage: 5-10MG
     Route: 048
  2. REVLIMID [Suspect]
     Route: 048
  3. MELPHALAN [Concomitant]
     Indication: MULTIPLE MYELOMA
     Route: 065
  4. MELPHALAN [Concomitant]
     Route: 065
  5. PREDNISONE [Concomitant]
     Indication: MULTIPLE MYELOMA
     Route: 065
  6. ANTITHROMBOTIC [Concomitant]
     Indication: THROMBOSIS PROPHYLAXIS
     Route: 065
  7. DEXAMETHASONE [Concomitant]
     Indication: MULTIPLE MYELOMA
     Route: 065
  8. CYCLOPHOSPHAMIDE [Concomitant]
     Dosage: 4 G/M2
     Route: 065
  9. NEUPOGEN [Concomitant]
     Route: 065

REACTIONS (13)
  - ANAEMIA [None]
  - DEEP VEIN THROMBOSIS [None]
  - DIARRHOEA [None]
  - FATIGUE [None]
  - FEBRILE NEUTROPENIA [None]
  - INFECTION [None]
  - MOOD ALTERED [None]
  - NEUTROPENIA [None]
  - PNEUMONIA [None]
  - PULMONARY EMBOLISM [None]
  - RASH [None]
  - THROMBOCYTOPENIA [None]
  - VASCULITIS [None]
